FAERS Safety Report 7012126-7 (Version None)
Quarter: 2010Q3

REPORT INFORMATION
  Report Type: 
  Country: None (occurrence: None)
  Receive Date: 20100922
  Receipt Date: 20100922
  Transmission Date: 20110219
  Serious: Yes (Hospitalization)
  Sender: FDA-Public Use
  Company Number: None

PATIENT
  Sex: Female
  Weight: 66.36 kg

DRUGS (2)
  1. CISPLATIN [Suspect]
     Dosage: 50 MG
     Dates: end: 20100818
  2. TAXOL [Suspect]
     Dosage: 175 MG
     Dates: end: 20100818

REACTIONS (4)
  - HYDRONEPHROSIS [None]
  - URETERIC DILATATION [None]
  - URETERIC OBSTRUCTION [None]
  - URINARY TRACT INFECTION [None]
